FAERS Safety Report 7586377-7 (Version None)
Quarter: 2011Q3

REPORT INFORMATION
  Report Type: 
  Country: None (occurrence: None)
  Receive Date: 20110701
  Receipt Date: 20110624
  Transmission Date: 20111222
  Serious: Yes (Other)
  Sender: FDA-Public Use
  Company Number: A0809326A

PATIENT
  Age: 53 Year
  Sex: Male

DRUGS (9)
  1. MECLIZINE [Concomitant]
     Indication: VERTIGO
     Dates: start: 20020101
  2. ASPIRIN [Concomitant]
  3. COREG [Suspect]
     Dosage: 25MG TWICE PER DAY
     Route: 048
     Dates: start: 20050101
  4. REQUIP [Suspect]
     Indication: RESTLESS LEGS SYNDROME
     Dosage: .5MG PER DAY
     Route: 048
     Dates: start: 20050101
  5. LOVASTATIN [Concomitant]
  6. LEVOTHYROXINE SODIUM [Concomitant]
  7. LISINOPRIL [Concomitant]
  8. CLONIDINE [Concomitant]
  9. NITROSTAT [Concomitant]

REACTIONS (11)
  - PAIN IN EXTREMITY [None]
  - VISUAL ACUITY REDUCED [None]
  - DIZZINESS [None]
  - DYSARTHRIA [None]
  - VISUAL IMPAIRMENT [None]
  - SENSATION OF HEAVINESS [None]
  - WEIGHT DECREASED [None]
  - VISION BLURRED [None]
  - RASH ERYTHEMATOUS [None]
  - SEDATION [None]
  - CONTUSION [None]
